FAERS Safety Report 6366069-2 (Version None)
Quarter: 2009Q3

REPORT INFORMATION
  Report Type: 
  Country: None (occurrence: None)
  Receive Date: 20090919
  Receipt Date: 20090827
  Transmission Date: 20100115
  Serious: No
  Sender: FDA-Public Use
  Company Number: US-ABBOTT-09P-163-0594239-00

PATIENT
  Sex: Female
  Weight: 106.69 kg

DRUGS (4)
  1. HUMIRA [Suspect]
     Indication: RHEUMATOID ARTHRITIS
     Dosage: ONE EVERY TWO WEEKS, SYRINGE
     Route: 058
     Dates: start: 20040101
  2. HUMIRA [Suspect]
     Indication: SYSTEMIC LUPUS ERYTHEMATOSUS
     Dosage: ONE EVERY TWO WEEKS, PEN
     Route: 058
     Dates: end: 20090101
  3. HUMIRA [Suspect]
     Route: 058
     Dates: start: 20090101, end: 20090301
  4. HUMIRA [Suspect]
     Route: 058
     Dates: start: 20090301

REACTIONS (8)
  - DRUG DOSE OMISSION [None]
  - INJECTION SITE HAEMATOMA [None]
  - INJECTION SITE URTICARIA [None]
  - NASOPHARYNGITIS [None]
  - RHEUMATOID ARTHRITIS [None]
  - SINUSITIS [None]
  - STAPHYLOCOCCAL SKIN INFECTION [None]
  - SYSTEMIC LUPUS ERYTHEMATOSUS [None]
